FAERS Safety Report 12752700 (Version 2)
Quarter: 2016Q3

REPORT INFORMATION
  Report Type: Spontaneous
  Country: CA (occurrence: CA)
  Receive Date: 20160916
  Receipt Date: 20160920
  Transmission Date: 20161109
  Serious: Yes (Other)
  Sender: FDA-Public Use
  Company Number: CA-ROCHE-1829312

PATIENT
  Age: 67 Year
  Sex: Male

DRUGS (6)
  1. XOLAIR [Suspect]
     Active Substance: OMALIZUMAB
     Dosage: UNK
     Route: 058
     Dates: start: 20160906
  2. XOLAIR [Suspect]
     Active Substance: OMALIZUMAB
     Indication: ASTHMA
     Dosage: 375 MG, BIW
     Route: 058
     Dates: start: 20160406
  3. SEEBRI [Suspect]
     Active Substance: GLYCOPYRRONIUM
     Dosage: FOR ABOUT 2 WEEKS NOW
     Route: 055
  4. PREDNISONE. [Concomitant]
     Active Substance: PREDNISONE
     Indication: PRODUCT USED FOR UNKNOWN INDICATION
     Dosage: 5 TIMES
     Route: 065
  5. XOLAIR [Suspect]
     Active Substance: OMALIZUMAB
     Dosage: UNK
     Route: 058
     Dates: start: 20160822
  6. SEEBRI [Suspect]
     Active Substance: GLYCOPYRRONIUM
     Indication: PRODUCT USED FOR UNKNOWN INDICATION
     Dosage: 50 UG, QOD
     Route: 055

REACTIONS (17)
  - Anosmia [Unknown]
  - Inspiratory capacity decreased [Unknown]
  - Wheezing [Unknown]
  - Blood pressure systolic increased [Unknown]
  - Chronic obstructive pulmonary disease [Unknown]
  - Dyspnoea [Unknown]
  - Upper-airway cough syndrome [Unknown]
  - Cough [Unknown]
  - Asthma [Unknown]
  - Dyspnoea at rest [Unknown]
  - Blood immunoglobulin E increased [Unknown]
  - Drug ineffective [Unknown]
  - Chest discomfort [Unknown]
  - Sleep apnoea syndrome [Unknown]
  - Sleep disorder [Unknown]
  - Decreased activity [Unknown]
  - Ageusia [Unknown]

NARRATIVE: CASE EVENT DATE: 20160906
